FAERS Safety Report 24399445 (Version 1)
Quarter: 2024Q4

REPORT INFORMATION
  Report Type: Spontaneous
  Country: PE (occurrence: PE)
  Receive Date: 20241004
  Receipt Date: 20241004
  Transmission Date: 20250115
  Serious: Yes (Hospitalization, Other)
  Sender: NOVITIUM PHARMA
  Company Number: PE-NOVITIUMPHARMA-2024PENVP02050

PATIENT
  Age: 45 Year
  Sex: Male

DRUGS (7)
  1. PREDNISONE [Suspect]
     Active Substance: PREDNISONE
     Indication: Back pain
     Route: 048
  2. TRAMADOL [Concomitant]
     Active Substance: TRAMADOL
     Indication: Back pain
     Dosage: 12.5 MG/H
     Route: 042
  3. ACETAMINOPHEN [Concomitant]
     Active Substance: ACETAMINOPHEN
     Indication: Back pain
     Route: 042
  4. KETOPROFEN [Concomitant]
     Active Substance: KETOPROFEN
     Indication: Back pain
     Route: 042
  5. ORPHENADRINE [Concomitant]
     Active Substance: ORPHENADRINE
     Indication: Back pain
     Route: 042
  6. MORPHINE [Concomitant]
     Active Substance: MORPHINE
     Indication: Back pain
     Dosage: 1.67 MG/H
     Route: 042
  7. MORPHINE [Concomitant]
     Active Substance: MORPHINE
     Dosage: AS NEEDED UP TO 3 TIMES PER DAY

REACTIONS (3)
  - Intervertebral discitis [Unknown]
  - Streptococcal infection [Unknown]
  - Intentional product misuse [Unknown]
